FAERS Safety Report 9733009 (Version 1)
Quarter: 2013Q4

REPORT INFORMATION
  Report Type: Spontaneous
  Country: US (occurrence: None)
  Receive Date: 20131204
  Receipt Date: 20131204
  Transmission Date: 20140711
  Serious: Yes (Hospitalization)
  Sender: FDA-Public Use
  Company Number: None

PATIENT
  Age: 85 Year
  Sex: Female
  Weight: 53.52 kg

DRUGS (6)
  1. NEXIUM [Suspect]
     Indication: MULTIPLE SCLEROSIS
     Route: 048
     Dates: start: 20130523, end: 20130913
  2. DEXILANT [Suspect]
  3. PREMARIN [Concomitant]
  4. VAGIFEM [Concomitant]
  5. BABY ASPIRIN [Concomitant]
  6. FISH OIL [Concomitant]

REACTIONS (2)
  - Pneumonia [None]
  - Weight decreased [None]
